FAERS Safety Report 8290064-X (Version None)
Quarter: 2012Q1

REPORT INFORMATION
  Report Type: 
  Country: None (occurrence: None)
  Receive Date: 20120316
  Receipt Date: 20090811
  Transmission Date: 20120608
  Serious: Yes (Other)
  Sender: FDA-Public Use
  Company Number: PHEH2009US09309

PATIENT
  Sex: Female

DRUGS (12)
  1. SINGULAIR [Concomitant]
  2. CRESTOR [Concomitant]
  3. TORSEMIDE [Concomitant]
  4. ALLOPURINOL [Concomitant]
  5. TEKTURNA [Suspect]
     Dates: start: 20090701
  6. PRILOSEC [Concomitant]
  7. CLONIDINE [Concomitant]
  8. WARFARIN SODIUM [Concomitant]
  9. REQUIP [Concomitant]
  10. NEURONTIN [Concomitant]
  11. LABETALOL HCL [Concomitant]
  12. SYNTHROID [Concomitant]

REACTIONS (2)
  - OEDEMA PERIPHERAL [None]
  - ALOPECIA [None]
